FAERS Safety Report 10216299 (Version 1)
Quarter: 2014Q2

REPORT INFORMATION
  Report Type: Spontaneous
  Country: US (occurrence: US)
  Receive Date: 20140604
  Receipt Date: 20140604
  Transmission Date: 20141212
  Serious: No
  Sender: FDA-Public Use
  Company Number: US-009507513-1405USA013016

PATIENT
  Sex: Male

DRUGS (1)
  1. MIRALAX [Suspect]
     Indication: PRODUCT USED FOR UNKNOWN INDICATION
     Dosage: EVERY DAY PER DOCTOR
     Route: 048

REACTIONS (4)
  - Drug effect incomplete [Unknown]
  - Nephrolithiasis [Unknown]
  - Obstruction [Unknown]
  - Diarrhoea [Unknown]
